FAERS Safety Report 20391406 (Version 1)
Quarter: 2022Q1

REPORT INFORMATION
  Report Type: Spontaneous
  Country: US (occurrence: None)
  Receive Date: 20220127
  Receipt Date: 20220127
  Transmission Date: 20220423
  Serious: No
  Sender: FDA-Public Use
  Company Number: None

PATIENT
  Sex: Female
  Weight: 86 kg

DRUGS (23)
  1. BRAFTOVI [Suspect]
     Active Substance: ENCORAFENIB
     Indication: Malignant melanoma
     Dosage: FREQUENCY : DAILY;?
     Route: 048
  2. MEKTOVI [Suspect]
     Active Substance: BINIMETINIB
     Indication: Malignant melanoma
     Dosage: FREQUENCY : TWICE A DAY;?
     Route: 048
  3. ALBUTEROL [Concomitant]
     Active Substance: ALBUTEROL
  4. ELIQUIS [Concomitant]
     Active Substance: APIXABAN
  5. AZELASTINE [Concomitant]
     Active Substance: AZELASTINE
  6. BENZONATATE [Concomitant]
     Active Substance: BENZONATATE
  7. BUTALBITAL, ACETAMINOPHEN, AND CAFFEINE [Concomitant]
     Active Substance: ACETAMINOPHEN\BUTALBITAL\CAFFEINE
  8. ZYRTEC [Concomitant]
     Active Substance: CETIRIZINE HYDROCHLORIDE
  9. VITAMIN D3 [Concomitant]
     Active Substance: CHOLECALCIFEROL
  10. LEXAPRO [Concomitant]
     Active Substance: ESCITALOPRAM OXALATE
  11. FAMOTIDINE [Concomitant]
     Active Substance: FAMOTIDINE
  12. FLONASE [Concomitant]
     Active Substance: FLUTICASONE PROPIONATE
  13. HYDROCODONE-HOMATROPINE [Concomitant]
  14. ACETAMINOPHEN\HYDROCODONE [Concomitant]
     Active Substance: ACETAMINOPHEN\HYDROCODONE
  15. XIIDRA [Concomitant]
     Active Substance: LIFITEGRAST
  16. LORAZEPAM [Concomitant]
     Active Substance: LORAZEPAM
  17. MONTELUKAST [Concomitant]
     Active Substance: MONTELUKAST SODIUM
  18. ONDANSETRON [Concomitant]
     Active Substance: ONDANSETRON
  19. PANTROPRAZOLE [Concomitant]
  20. RIZATRIPTAN [Concomitant]
     Active Substance: RIZATRIPTAN
  21. TRAMADOL [Concomitant]
     Active Substance: TRAMADOL
  22. TRIAMCINOLONE [Concomitant]
     Active Substance: TRIAMCINOLONE
  23. PREDNISONE [Concomitant]
     Active Substance: PREDNISONE

REACTIONS (1)
  - COVID-19 [None]
